FAERS Safety Report 23455429 (Version 1)
Quarter: 2024Q1

REPORT INFORMATION
  Report Type: Spontaneous
  Country: US (occurrence: US)
  Receive Date: 20240130
  Receipt Date: 20240130
  Transmission Date: 20240410
  Serious: Yes (Other)
  Sender: FDA-Public Use
  Company Number: US-STRIDES ARCOLAB LIMITED-2023SP002587

PATIENT
  Age: 76 Year
  Sex: Male

DRUGS (2)
  1. METHOTREXATE [Suspect]
     Active Substance: METHOTREXATE
     Indication: Acute febrile neutrophilic dermatosis
     Dosage: 5 MILLIGRAM, ONCE A WEEK
     Route: 065
  2. PREDNISOLONE [Suspect]
     Active Substance: PREDNISOLONE
     Indication: Acute febrile neutrophilic dermatosis
     Dosage: 30 MILLIGRAM, UNKNOWN
     Route: 065

REACTIONS (3)
  - Pancytopenia [Unknown]
  - Therapy non-responder [Unknown]
  - Off label use [Unknown]
